FAERS Safety Report 18645986 (Version 1)
Quarter: 2020Q4

REPORT INFORMATION
  Report Type: Spontaneous
  Country: US (occurrence: US)
  Receive Date: 20201222
  Receipt Date: 20201222
  Transmission Date: 20210114
  Serious: No
  Sender: FDA-Public Use
  Company Number: US-APOTEX-2020AP022865

PATIENT
  Sex: Male

DRUGS (2)
  1. ATENOLOL. [Concomitant]
     Active Substance: ATENOLOL
     Indication: HYPERTENSION
     Dosage: UNK
     Route: 065
  2. BUTORPHANOL TARTRATE NASAL SPRAY [Suspect]
     Active Substance: BUTORPHANOL TARTRATE
     Indication: PAIN
     Dosage: UNK, PRN (APPLIED 1 SPRAY ON BOTH NOSTRILS) THERAPY DURATION 4-8 YEARS
     Route: 045

REACTIONS (6)
  - Cold-stimulus headache [Unknown]
  - Therapeutic response unexpected [Unknown]
  - Withdrawal syndrome [Unknown]
  - Hyperhidrosis [Unknown]
  - Nervous system disorder [Unknown]
  - Intentional product use issue [Unknown]
